FAERS Safety Report 6283910-2 (Version None)
Quarter: 2009Q3

REPORT INFORMATION
  Report Type: 
  Country: None (occurrence: None)
  Receive Date: 20090722
  Receipt Date: 20090722
  Transmission Date: 20100115
  Serious: Yes (Hospitalization)
  Sender: FDA-Public Use
  Company Number: None

PATIENT
  Age: 45 Year
  Sex: Male

DRUGS (1)
  1. VENOFER [Suspect]
     Indication: ANAEMIA
     Dosage: 200 MG ONE TIME IV DRIP
     Route: 041
     Dates: start: 20090713, end: 20090713

REACTIONS (6)
  - ACUTE CORONARY SYNDROME [None]
  - CHEST PAIN [None]
  - DYSPNOEA [None]
  - MUSCLE SPASMS [None]
  - MYOGLOBIN BLOOD INCREASED [None]
  - NAUSEA [None]
